FAERS Safety Report 10338290 (Version 1)
Quarter: 2014Q3

REPORT INFORMATION
  Report Type: Spontaneous
  Country: US (occurrence: None)
  Receive Date: 20140722
  Receipt Date: 20140722
  Transmission Date: 20150326
  Serious: Yes (Other)
  Sender: FDA-Public Use
  Company Number: CA-ALSI-201400151

PATIENT
  Age: 23 Year
  Sex: Female

DRUGS (2)
  1. NITROUS OXIDE. [Suspect]
     Active Substance: NITROUS OXIDE
     Indication: DELIVERY
     Dosage: RESPIRATORY
     Dates: start: 201407, end: 201407
  2. OXYGEN. [Suspect]
     Active Substance: OXYGEN
     Dosage: RESPIRATORY
     Dates: start: 201407, end: 201407

REACTIONS (2)
  - Exposure during pregnancy [None]
  - Loss of consciousness [None]

NARRATIVE: CASE EVENT DATE: 201407
